FAERS Safety Report 4677710-4 (Version None)
Quarter: 2005Q2

REPORT INFORMATION
  Report Type: 
  Country: None (occurrence: None)
  Receive Date: 20050527
  Receipt Date: 20050519
  Transmission Date: 20051028
  Serious: Yes (Other)
  Sender: FDA-Public Use
  Company Number: GBWYE681319MAY05

PATIENT

DRUGS (5)
  1. EFFEXOR [Suspect]
     Indication: ANXIETY
     Dosage: 150 MG, TRANSPLACENTAL
     Route: 064
     Dates: start: 20031230, end: 20041231
  2. EFFEXOR [Suspect]
     Indication: DEPRESSION
     Dosage: 150 MG, TRANSPLACENTAL
     Route: 064
     Dates: start: 20031230, end: 20041231
  3. OLANZAPINE [Suspect]
     Indication: ANXIETY
     Dosage: 10 MG, TRANSPLACENTAL
     Route: 064
     Dates: start: 20041109, end: 20041231
  4. OLANZAPINE [Suspect]
     Indication: DEPRESSION
     Dosage: 10 MG, TRANSPLACENTAL
     Route: 064
     Dates: start: 20041109, end: 20041231
  5. TEMAZEPAM [Concomitant]

REACTIONS (3)
  - CONGENITAL ANOMALY [None]
  - DRUG EXPOSURE DURING PREGNANCY [None]
  - GASTROSCHISIS [None]
